FAERS Safety Report 9106886 (Version 1)
Quarter: 2013Q1

REPORT INFORMATION
  Report Type: Spontaneous
  Country: FR (occurrence: FR)
  Receive Date: 20130221
  Receipt Date: 20130221
  Transmission Date: 20140127
  Serious: Yes (Hospitalization)
  Sender: FDA-Public Use
  Company Number: FR-BRISTOL-MYERS SQUIBB COMPANY-17377862

PATIENT
  Age: 40 Year
  Sex: Female

DRUGS (4)
  1. APROVEL [Suspect]
     Route: 048
     Dates: start: 201203
  2. METFORMIN HCL [Suspect]
     Dates: start: 20130104, end: 20130107
  3. HUMIRA [Suspect]
     Dates: start: 201111
  4. IMUREL [Suspect]
     Route: 048
     Dates: start: 2011

REACTIONS (1)
  - Hepatocellular injury [Recovering/Resolving]
